FAERS Safety Report 6787389-3 (Version None)
Quarter: 2010Q2

REPORT INFORMATION
  Report Type: 
  Country: None (occurrence: None)
  Receive Date: 20100623
  Receipt Date: 20070606
  Transmission Date: 20101027
  Serious: No
  Sender: FDA-Public Use
  Company Number: US-PFIZER INC-2007025793

PATIENT
  Sex: Male
  Weight: 80.7 kg

DRUGS (7)
  1. SUTENT [Suspect]
     Indication: RENAL CELL CARCINOMA STAGE IV
     Route: 048
     Dates: start: 20070326
  2. SERTRALINE HCL [Concomitant]
     Dates: start: 20070308
  3. LOMOTIL [Concomitant]
     Dates: start: 20070326
  4. ALPRAZOLAM [Concomitant]
     Dates: start: 20070308
  5. GABAPENTIN [Concomitant]
     Dates: start: 20070301
  6. ZANTAC [Concomitant]
     Dates: start: 20070308
  7. METOPROLOL TARTRATE [Concomitant]
     Dates: start: 20070308, end: 20070501

REACTIONS (1)
  - LETHARGY [None]
